FAERS Safety Report 7442914-4 (Version None)
Quarter: 2011Q2

REPORT INFORMATION
  Report Type: 
  Country: None (occurrence: None)
  Receive Date: 20110428
  Receipt Date: 20110401
  Transmission Date: 20111010
  Serious: No
  Sender: FDA-Public Use
  Company Number: US-BAYER-2011-028935

PATIENT
  Age: 81 Year
  Sex: Female
  Weight: 75 kg

DRUGS (13)
  1. CRESTOR [Concomitant]
  2. PRILOSEC [Concomitant]
  3. VITAMIN B [Concomitant]
  4. VITAMIN A [Concomitant]
  5. CENTRUM [Concomitant]
  6. VITAMIN C [Concomitant]
  7. VITAMIN E [Concomitant]
  8. ANTIHYPERTENSIVES [Concomitant]
  9. ALEVE (CAPLET) [Suspect]
     Indication: ARTHRITIS
     Dosage: BOTTLE COUNT 100S
     Route: 048
  10. ALEVE [Suspect]
     Indication: ARTHRITIS
     Dosage: BOTTLE COUNT 80S
     Route: 048
  11. ZIAC [Concomitant]
  12. VITAMIN D [Concomitant]
  13. ASPIRIN [Concomitant]

REACTIONS (2)
  - RASH [None]
  - DISCOMFORT [None]
